FAERS Safety Report 5202098-X (Version None)
Quarter: 2007Q1

REPORT INFORMATION
  Report Type: 
  Country: None (occurrence: None)
  Receive Date: 20070109
  Receipt Date: 20070103
  Transmission Date: 20070707
  Serious: Yes (Hospitalization)
  Sender: FDA-Public Use
  Company Number: US-JNJFOC-20070101176

PATIENT
  Sex: Female
  Weight: 60.78 kg

DRUGS (6)
  1. DURAGESIC-100 [Suspect]
     Indication: PAIN
     Route: 062
  2. SYNTHROID [Concomitant]
     Indication: HYPOTHYROIDISM
     Route: 048
  3. NORCO [Concomitant]
     Indication: BREAKTHROUGH PAIN
     Route: 048
  4. SOMA [Concomitant]
     Indication: FIBROMYALGIA
     Route: 048
  5. SOMA [Concomitant]
     Indication: PAIN
     Route: 048
  6. ATIVAN [Concomitant]
     Indication: ANXIETY
     Route: 048

REACTIONS (7)
  - APPLICATION SITE ERYTHEMA [None]
  - APPLICATION SITE IRRITATION [None]
  - DRUG WITHDRAWAL SYNDROME [None]
  - PHARMACEUTICAL PRODUCT COMPLAINT [None]
  - POST HERPETIC NEURALGIA [None]
  - RECTAL HAEMORRHAGE [None]
  - ROAD TRAFFIC ACCIDENT [None]
